FAERS Safety Report 6389235-9 (Version None)
Quarter: 2009Q4

REPORT INFORMATION
  Report Type: 
  Country: None (occurrence: None)
  Receive Date: 20091006
  Receipt Date: 20090924
  Transmission Date: 20100525
  Serious: Yes (Other)
  Sender: FDA-Public Use
  Company Number: PHHY2009JP41679

PATIENT
  Age: 38 Year
  Sex: Female

DRUGS (3)
  1. CYCLOSPORINE [Suspect]
     Indication: WEGENER'S GRANULOMATOSIS
     Dosage: UNK
  2. PREDONINE [Suspect]
     Indication: WEGENER'S GRANULOMATOSIS
     Dosage: 60 MG/DAY
  3. CYCLOPHOSPHAMIDE [Suspect]
     Indication: WEGENER'S GRANULOMATOSIS
     Dosage: 100 MG/DAY

REACTIONS (5)
  - DIABETES MELLITUS [None]
  - HAEMODIALYSIS [None]
  - HYPERURICAEMIA [None]
  - INFECTION [None]
  - RENAL FAILURE CHRONIC [None]
